FAERS Safety Report 14267634 (Version 1)
Quarter: 2017Q4

REPORT INFORMATION
  Report Type: Spontaneous
  Country: US (occurrence: US)
  Receive Date: 20171211
  Receipt Date: 20171211
  Transmission Date: 20180321
  Serious: No
  Sender: FDA-Public Use
  Company Number: US-ROCHE-1849433

PATIENT
  Sex: Female
  Weight: 118.04 kg

DRUGS (18)
  1. VALIUM [Suspect]
     Active Substance: DIAZEPAM
     Indication: PRODUCT USED FOR UNKNOWN INDICATION
     Dosage: DAILY 4 WEEKS ON 2 WEEKS OFF
     Route: 048
  2. XANAX [Concomitant]
     Active Substance: ALPRAZOLAM
     Dosage: 1 TABLET BY MOUTH TWICE DAILY
     Route: 065
  3. DIFLUCAN [Concomitant]
     Active Substance: FLUCONAZOLE
     Dosage: 1 PILL AND REPEAT EVERY 3 DAYS FOR 3 DOSES THEN 1 PILL ONCE A WEEK
     Route: 065
  4. MICROZIDE (UNITED STATES) [Concomitant]
     Dosage: 1 CAPSULE DAILY BY MOUTH
     Route: 065
  5. OMEGA 3 [Concomitant]
     Active Substance: OMEGA-3 FATTY ACIDS
     Route: 065
  6. MACROBID (UNITED STATES) [Concomitant]
  7. ZOVIRAX [Concomitant]
     Active Substance: ACYCLOVIR
     Dosage: BY MOUTH
     Route: 048
  8. ELIQUIS [Concomitant]
     Active Substance: APIXABAN
     Dosage: 1 TABLET BY MOUTH 2 TIMES DAILY
     Route: 065
  9. CRANBERRY. [Concomitant]
     Active Substance: CRANBERRY
     Dosage: 300 MG BY MOUTH 3 TIMES DAILY
     Route: 065
  10. APRESOLINE HYDROCHLORIDE [Concomitant]
     Active Substance: HYDRALAZINE HYDROCHLORIDE
     Dosage: 1-2 PILLS EVERY 8 HOURS BASED ON BP
     Route: 065
  11. SUTENT [Concomitant]
     Active Substance: SUNITINIB MALATE
     Dosage: DAILY 4 WEEKS THEN 2 WEEKS OFF (25 MG + 12MG)
     Route: 048
  12. ZINC SULFATE [Concomitant]
     Active Substance: ZINC SULFATE\ZINC SULFATE ANHYDROUS
     Dosage: 1 TAB DAILY
     Route: 065
  13. NORCO [Concomitant]
     Active Substance: ACETAMINOPHEN\HYDROCODONE BITARTRATE
     Dosage: 5-325 MG PER TABLET (1 TABLET EVERY 6 HOURS AS NEEDED FOR PAIN MAX: 4 TABLETS)
     Route: 065
  14. PRINIVIL [Concomitant]
     Active Substance: LISINOPRIL
     Dosage: 1 TAB DAILY
     Route: 065
  15. TYLENOL [Concomitant]
     Active Substance: ACETAMINOPHEN
     Dosage: 500 MG BY MOUTH
     Route: 065
  16. BENADRYL [Concomitant]
     Active Substance: DIPHENHYDRAMINE HYDROCHLORIDE
     Dosage: BY MOUTH EVERY 6 HOURS AS NEEDED
     Route: 065
  17. FISH OIL [Concomitant]
     Active Substance: FISH OIL
     Route: 065
  18. CARDIZEM [Concomitant]
     Active Substance: DILTIAZEM HYDROCHLORIDE
     Dosage: 1 CAPSULE BY MOUTH 2 TIMES DAILY
     Route: 065

REACTIONS (1)
  - Drug hypersensitivity [Unknown]
